FAERS Safety Report 13696909 (Version 2)
Quarter: 2017Q3

REPORT INFORMATION
  Report Type: Spontaneous
  Country: US (occurrence: US)
  Receive Date: 20170628
  Receipt Date: 20170703
  Transmission Date: 20171127
  Serious: Yes (Other)
  Sender: FDA-Public Use
  Company Number: US-SUN PHARMACEUTICAL INDUSTRIES LTD-2017US-144129

PATIENT
  Sex: Female

DRUGS (2)
  1. THIOTEPA. [Suspect]
     Active Substance: THIOTEPA
     Indication: CNS GERMINOMA
     Dosage: THIRD CYCLE
     Route: 065
  2. CARBOPLATIN. [Suspect]
     Active Substance: CARBOPLATIN
     Indication: CNS GERMINOMA
     Dosage: THIRD CYCLE
     Route: 065

REACTIONS (5)
  - Anal incontinence [Not Recovered/Not Resolved]
  - Disease progression [Recovered/Resolved]
  - Neurotoxicity [Not Recovered/Not Resolved]
  - Paraplegia [Not Recovered/Not Resolved]
  - Urinary incontinence [Not Recovered/Not Resolved]
